FAERS Safety Report 24420978 (Version 2)
Quarter: 2024Q4

REPORT INFORMATION
  Report Type: Spontaneous
  Country: PK (occurrence: PK)
  Receive Date: 20241010
  Receipt Date: 20241018
  Transmission Date: 20250114
  Serious: No
  Sender: ROCHE
  Company Number: PK-BoehringerIngelheim-2024-BI-029758

PATIENT
  Age: 88 Year
  Sex: Male

DRUGS (1)
  1. ALTEPLASE [Suspect]
     Active Substance: ALTEPLASE
     Indication: Thrombosis in device
     Dosage: DOSE 2.5 MG/ML
     Route: 065

REACTIONS (1)
  - Hyperphosphataemia [Unknown]
